FAERS Safety Report 16000089 (Version 2)
Quarter: 2019Q1

REPORT INFORMATION
  Report Type: Spontaneous
  Country: SK (occurrence: SK)
  Receive Date: 20190225
  Receipt Date: 20190304
  Transmission Date: 20190418
  Serious: Yes (Other)
  Sender: FDA-Public Use
  Company Number: SK-PFIZER INC-2019077029

PATIENT
  Age: 50 Year
  Sex: Male

DRUGS (6)
  1. ZOLPIDEM TARTRATE. [Suspect]
     Active Substance: ZOLPIDEM TARTRATE
     Indication: ANXIETY
     Dosage: UNK
     Route: 048
  2. ALPRAZOLAM. [Suspect]
     Active Substance: ALPRAZOLAM
     Indication: DEPRESSION
  3. TIANEPTINE [Suspect]
     Active Substance: TIANEPTINE
     Indication: ANXIETY
     Dosage: UNK
     Route: 048
  4. ZOLPIDEM TARTRATE. [Suspect]
     Active Substance: ZOLPIDEM TARTRATE
     Indication: DEPRESSION
  5. TIANEPTINE [Suspect]
     Active Substance: TIANEPTINE
     Indication: DEPRESSION
  6. ALPRAZOLAM. [Suspect]
     Active Substance: ALPRAZOLAM
     Indication: ANXIETY
     Dosage: UNK

REACTIONS (15)
  - Decreased appetite [Unknown]
  - Tension [Unknown]
  - Suicidal ideation [Unknown]
  - Dyssomnia [Unknown]
  - Weight decreased [Unknown]
  - Feeling abnormal [Unknown]
  - Abulia [Unknown]
  - Amimia [Unknown]
  - Depression [Unknown]
  - Insomnia [Unknown]
  - Asthenia [Unknown]
  - Anhedonia [Unknown]
  - Thinking abnormal [Unknown]
  - Anxiety [Unknown]
  - Bradyphrenia [Unknown]
